FAERS Safety Report 4779563-2 (Version None)
Quarter: 2005Q3

REPORT INFORMATION
  Report Type: 
  Country: None (occurrence: None)
  Receive Date: 20050923
  Receipt Date: 20050914
  Transmission Date: 20060218
  Serious: Yes (Death)
  Sender: FDA-Public Use
  Company Number: OXCD20050002

PATIENT
  Age: 33 Year
  Sex: Female

DRUGS (5)
  1. OXYCODONE HCL [Suspect]
     Dates: start: 20050624, end: 20050624
  2. PROZAC [Concomitant]
  3. THIAZIDE [Concomitant]
  4. BETAGEN [Concomitant]
  5. MULTI-VITAMIN [Concomitant]

REACTIONS (6)
  - HYPERTENSIVE NEPHROPATHY [None]
  - INJURY ASPHYXIATION [None]
  - KIDNEY SMALL [None]
  - PARALYSIS [None]
  - RESPIRATORY DEPRESSION [None]
  - VOMITING [None]
